FAERS Safety Report 20289423 (Version 1)
Quarter: 2022Q1

REPORT INFORMATION
  Report Type: Report from Study
  Country: TR (occurrence: None)
  Receive Date: 20220104
  Receipt Date: 20220104
  Transmission Date: 20220424
  Serious: Yes (Other)
  Sender: FDA-Public Use
  Company Number: 2021A907488

PATIENT
  Age: 861 Month
  Sex: Male

DRUGS (51)
  1. OLAPARIB [Suspect]
     Active Substance: OLAPARIB
     Indication: Hormone-refractory prostate cancer
     Dosage: 300.00 MG BID
     Route: 048
     Dates: start: 20190619, end: 20191203
  2. OLAPARIB [Suspect]
     Active Substance: OLAPARIB
     Indication: Hormone-refractory prostate cancer
     Dosage: 300.00 MG BID
     Route: 048
     Dates: start: 20191212, end: 20200129
  3. OLAPARIB [Suspect]
     Active Substance: OLAPARIB
     Indication: Hormone-refractory prostate cancer
     Dosage: 300.00 MG BID
     Route: 048
     Dates: start: 20200203, end: 20200303
  4. OLAPARIB [Suspect]
     Active Substance: OLAPARIB
     Indication: Hormone-refractory prostate cancer
     Dosage: 300.00 MG BID
     Route: 048
     Dates: start: 20200305, end: 20200421
  5. OLAPARIB [Suspect]
     Active Substance: OLAPARIB
     Indication: Hormone-refractory prostate cancer
     Dosage: 300.00 MG BID
     Route: 048
     Dates: start: 20200428, end: 20200617
  6. OLAPARIB [Suspect]
     Active Substance: OLAPARIB
     Indication: Hormone-refractory prostate cancer
     Dosage: 300.00 MG BID
     Route: 048
     Dates: start: 20200622, end: 20200715
  7. OLAPARIB [Suspect]
     Active Substance: OLAPARIB
     Indication: Hormone-refractory prostate cancer
     Dosage: 300.00 MG BID
     Route: 048
     Dates: start: 20200720, end: 20200812
  8. OLAPARIB [Suspect]
     Active Substance: OLAPARIB
     Indication: Hormone-refractory prostate cancer
     Dosage: 300.00 MG BID
     Route: 048
     Dates: start: 20200818, end: 20200910
  9. OLAPARIB [Suspect]
     Active Substance: OLAPARIB
     Indication: Hormone-refractory prostate cancer
     Dosage: 300.00 MG BID
     Route: 048
     Dates: start: 20200914, end: 20201011
  10. OLAPARIB [Suspect]
     Active Substance: OLAPARIB
     Indication: Hormone-refractory prostate cancer
     Dosage: 300.00 MG BID
     Route: 048
     Dates: start: 20201014, end: 20201104
  11. OLAPARIB [Suspect]
     Active Substance: OLAPARIB
     Indication: Hormone-refractory prostate cancer
     Dosage: 300.00 MG BID
     Route: 048
     Dates: start: 20201113, end: 20201203
  12. OLAPARIB [Suspect]
     Active Substance: OLAPARIB
     Indication: Hormone-refractory prostate cancer
     Dosage: 300.00 MG BID
     Route: 048
     Dates: start: 20201209, end: 20201229
  13. OLAPARIB [Suspect]
     Active Substance: OLAPARIB
     Indication: Hormone-refractory prostate cancer
     Dosage: 300.00 MG BID
     Route: 048
     Dates: start: 20210106, end: 20210221
  14. OLAPARIB [Suspect]
     Active Substance: OLAPARIB
     Indication: Hormone-refractory prostate cancer
     Dosage: 300.00 MG BID
     Route: 048
     Dates: start: 20210225, end: 20210323
  15. OLAPARIB [Suspect]
     Active Substance: OLAPARIB
     Indication: Hormone-refractory prostate cancer
     Dosage: 300.00 MG BID
     Route: 048
     Dates: start: 20210402, end: 20210517
  16. OLAPARIB [Suspect]
     Active Substance: OLAPARIB
     Indication: Hormone-refractory prostate cancer
     Dosage: 300.00 MG BID
     Route: 048
     Dates: start: 20210524, end: 20210615
  17. OLAPARIB [Suspect]
     Active Substance: OLAPARIB
     Indication: Hormone-refractory prostate cancer
     Dosage: 300.00 MG BID
     Route: 048
     Dates: start: 20210618, end: 20210711
  18. OLAPARIB [Suspect]
     Active Substance: OLAPARIB
     Indication: Hormone-refractory prostate cancer
     Dosage: 300.00 MG BID
     Route: 048
     Dates: start: 20210714, end: 20210813
  19. OLAPARIB [Suspect]
     Active Substance: OLAPARIB
     Indication: Hormone-refractory prostate cancer
     Dosage: 300.00 MG BID
     Route: 048
     Dates: start: 20210817, end: 20210912
  20. OLAPARIB [Suspect]
     Active Substance: OLAPARIB
     Indication: Hormone-refractory prostate cancer
     Dosage: 300.00 MG BID
     Route: 048
     Dates: start: 20210916, end: 20211005
  21. OLAPARIB [Suspect]
     Active Substance: OLAPARIB
     Indication: Hormone-refractory prostate cancer
     Dosage: 300.00 MG BID
     Route: 048
     Dates: start: 20211008, end: 20211010
  22. ABIRATERONE [Suspect]
     Active Substance: ABIRATERONE
     Indication: Hormone-refractory prostate cancer
     Dosage: 1000.00 MG QD
     Route: 048
     Dates: start: 20190619, end: 20200303
  23. ABIRATERONE [Suspect]
     Active Substance: ABIRATERONE
     Indication: Hormone-refractory prostate cancer
     Dosage: 1000.00 MG QD
     Route: 048
     Dates: start: 20200305, end: 20200421
  24. ABIRATERONE [Suspect]
     Active Substance: ABIRATERONE
     Indication: Hormone-refractory prostate cancer
     Dosage: 1000.00 MG QD
     Route: 048
     Dates: start: 20200428, end: 20200617
  25. ABIRATERONE [Suspect]
     Active Substance: ABIRATERONE
     Indication: Hormone-refractory prostate cancer
     Dosage: 1000.00 MG QD
     Route: 048
     Dates: start: 20200622, end: 20200715
  26. ABIRATERONE [Suspect]
     Active Substance: ABIRATERONE
     Indication: Hormone-refractory prostate cancer
     Dosage: 1000.00 MG QD
     Route: 048
     Dates: start: 20200720, end: 20200812
  27. ABIRATERONE [Suspect]
     Active Substance: ABIRATERONE
     Indication: Hormone-refractory prostate cancer
     Dosage: 1000.00 MG QD
     Route: 048
     Dates: start: 20200818, end: 20200910
  28. ABIRATERONE [Suspect]
     Active Substance: ABIRATERONE
     Indication: Hormone-refractory prostate cancer
     Dosage: 1000.00 MG QD
     Route: 048
     Dates: start: 20200914, end: 20201011
  29. ABIRATERONE [Suspect]
     Active Substance: ABIRATERONE
     Indication: Hormone-refractory prostate cancer
     Dosage: 1000.00 MG QD
     Route: 048
     Dates: start: 20201014, end: 20201104
  30. ABIRATERONE [Suspect]
     Active Substance: ABIRATERONE
     Indication: Hormone-refractory prostate cancer
     Dosage: 1000.00 MG QD
     Route: 048
     Dates: start: 20201113, end: 20201203
  31. ABIRATERONE [Suspect]
     Active Substance: ABIRATERONE
     Indication: Hormone-refractory prostate cancer
     Dosage: 1000.00 MG QD
     Route: 048
     Dates: start: 20201209, end: 20201229
  32. ABIRATERONE [Suspect]
     Active Substance: ABIRATERONE
     Indication: Hormone-refractory prostate cancer
     Dosage: 1000.00 MG QD
     Route: 048
     Dates: start: 20210106, end: 20210221
  33. ABIRATERONE [Suspect]
     Active Substance: ABIRATERONE
     Indication: Hormone-refractory prostate cancer
     Dosage: 1000.00 MG QD
     Route: 048
     Dates: start: 20210225, end: 20210323
  34. ABIRATERONE [Suspect]
     Active Substance: ABIRATERONE
     Indication: Hormone-refractory prostate cancer
     Dosage: 1000.00 MG QD
     Route: 048
     Dates: start: 20210402, end: 20210517
  35. ABIRATERONE [Suspect]
     Active Substance: ABIRATERONE
     Indication: Hormone-refractory prostate cancer
     Dosage: 1000.00 MG QD
     Route: 048
     Dates: start: 20210524, end: 20210615
  36. ABIRATERONE [Suspect]
     Active Substance: ABIRATERONE
     Indication: Hormone-refractory prostate cancer
     Dosage: 1000.00 MG QD
     Route: 048
     Dates: start: 20210618, end: 20210711
  37. ABIRATERONE [Suspect]
     Active Substance: ABIRATERONE
     Indication: Hormone-refractory prostate cancer
     Dosage: 1000.00 MG QD
     Route: 048
     Dates: start: 20210714, end: 20210803
  38. ABIRATERONE [Suspect]
     Active Substance: ABIRATERONE
     Indication: Hormone-refractory prostate cancer
     Dosage: 1000.00 MG QD
     Route: 048
     Dates: start: 20210817, end: 20210912
  39. ABIRATERONE [Suspect]
     Active Substance: ABIRATERONE
     Indication: Hormone-refractory prostate cancer
     Dosage: 1000.00 MG QD
     Route: 048
     Dates: start: 20210916, end: 20211005
  40. ABIRATERONE [Suspect]
     Active Substance: ABIRATERONE
     Indication: Hormone-refractory prostate cancer
     Dosage: 1000.00 MG QD
     Route: 048
     Dates: start: 20211008, end: 20211010
  41. ABIRATERONE [Suspect]
     Active Substance: ABIRATERONE
     Indication: Hormone-refractory prostate cancer
     Dosage: 1000.00 MG QD
     Route: 048
     Dates: start: 20211017
  42. PREDNISONE [Concomitant]
     Active Substance: PREDNISONE
     Indication: Hormone-refractory prostate cancer
     Dosage: 5.00 MG BID
     Route: 048
     Dates: start: 20211008
  43. GRANITRON [Concomitant]
     Indication: Nausea
     Dosage: 30.00 MG BID
     Route: 042
     Dates: start: 20211104, end: 20211114
  44. ZYGOSIS [Concomitant]
     Indication: Prophylaxis
     Dosage: 40.00 MG QD
     Route: 042
     Dates: start: 20211104, end: 20211114
  45. METOKLOPROMID [Concomitant]
     Indication: Prophylaxis
     Dosage: 120.00 MG BID
     Route: 042
     Dates: start: 20211104, end: 20211114
  46. ISOTONIC NACL [Concomitant]
     Indication: Hypophagia
     Dosage: 1000.00 ML QD
     Route: 042
     Dates: start: 20211104, end: 20211114
  47. IZOLEKS P %5 DEKSTROZ [Concomitant]
     Indication: Dehydration
     Dosage: 1000.00 ML QD
     Route: 042
     Dates: start: 20211104, end: 20211106
  48. IZOLEKS P %5 DEKSTROZ [Concomitant]
     Indication: Dehydration
     Dosage: 1000.00 ML QD
     Route: 042
     Dates: start: 20211108, end: 20211114
  49. TRAMOSEL [Concomitant]
     Indication: Analgesic therapy
     Dosage: 300.00 MG TID
     Route: 042
     Dates: start: 20211104, end: 20211114
  50. PERIOLIMEL [Concomitant]
     Indication: Parenteral nutrition
     Dosage: 1500.00 ML QD
     Route: 042
     Dates: start: 20211106, end: 20211114
  51. AMLODIS [Concomitant]
     Indication: Hypertension
     Dosage: 5.00 MG QD
     Route: 048
     Dates: start: 20211110, end: 20211111

REACTIONS (1)
  - Drug-induced liver injury [Recovered/Resolved]

NARRATIVE: CASE EVENT DATE: 20211206
